FAERS Safety Report 8922064 (Version 1)
Quarter: 2012Q4

REPORT INFORMATION
  Report Type: 
  Country: FR (occurrence: FR)
  Receive Date: 20121126
  Receipt Date: 20121126
  Transmission Date: 20130627
  Serious: Yes (Hospitalization)
  Sender: FDA-Public Use
  Company Number: FR-CELGENEUS-056-20785-12111533

PATIENT
  Age: 66 Year
  Sex: Female

DRUGS (2)
  1. THALIDOMIDE [Suspect]
     Indication: SYSTEMIC LUPUS ERYTHEMATOSUS
     Route: 048
  2. HYDROXYCHLOROQUINE [Concomitant]
     Indication: SYSTEMIC LUPUS ERYTHEMATOSUS
     Route: 065

REACTIONS (10)
  - Acute respiratory failure [Recovered/Resolved]
  - Pulmonary alveolar haemorrhage [Unknown]
  - Hypocomplementaemia [Unknown]
  - Glomerulonephritis [Recovered/Resolved]
  - Pericarditis [Unknown]
  - Renal failure [Recovered/Resolved]
  - Hypotension [Unknown]
  - Thrombocytopenia [Unknown]
  - Systemic lupus erythematosus [Unknown]
  - Polyarthritis [Unknown]
